FAERS Safety Report 4579667-3 (Version None)
Quarter: 2005Q1

REPORT INFORMATION
  Report Type: 
  Country: None (occurrence: None)
  Receive Date: 20050210
  Receipt Date: 20050126
  Transmission Date: 20050727
  Serious: Yes (Death)
  Sender: FDA-Public Use
  Company Number: 2004AL000790

PATIENT
  Age: 20 Year
  Sex: Male

DRUGS (5)
  1. VERAPAMIL HYDROCHLORIDE [Suspect]
     Dosage: PO
     Route: 048
  2. METOPROLOL [Suspect]
     Dosage: PO
     Route: 048
  3. DIGOXIN [Suspect]
     Dosage: PO
     Route: 048
  4. HYDRALAZINE [Suspect]
     Dosage: PO
     Route: 048
  5. ASPIRIN [Suspect]
     Dosage: PO
     Route: 048

REACTIONS (8)
  - AV DISSOCIATION [None]
  - BRADYCARDIA [None]
  - COMPLETED SUICIDE [None]
  - CYANOSIS [None]
  - HYPOTENSION [None]
  - INTENTIONAL MISUSE [None]
  - LIVEDO RETICULARIS [None]
  - MENTAL STATUS CHANGES [None]
